FAERS Safety Report 6988807-8 (Version None)
Quarter: 2010Q3

REPORT INFORMATION
  Report Type: 
  Country: None (occurrence: None)
  Receive Date: 20100916
  Receipt Date: 20060822
  Transmission Date: 20110219
  Serious: Yes (Life-Threatening, Hospitalization, Congenital Anomaly)
  Sender: FDA-Public Use
  Company Number: DE-JNJFOC-20060200643

PATIENT
  Sex: Male
  Weight: 2.86 kg

DRUGS (11)
  1. TOPAMAX [Suspect]
     Indication: EPILEPSY
     Route: 015
  2. TOPAMAX [Suspect]
     Route: 015
  3. TOPAMAX [Suspect]
     Route: 015
  4. TOPAMAX [Suspect]
     Route: 015
  5. LAMICTAL [Suspect]
     Indication: DRUG EXPOSURE DURING PREGNANCY
     Route: 015
  6. LAMICTAL [Suspect]
     Route: 015
  7. FOLIC ACID [Suspect]
     Indication: DRUG EXPOSURE DURING PREGNANCY
     Route: 015
  8. CLOBAZAM [Suspect]
     Indication: DRUG EXPOSURE DURING PREGNANCY
     Route: 015
  9. CLOBAZAM [Suspect]
     Route: 015
  10. IRON [Concomitant]
     Indication: DRUG EXPOSURE DURING PREGNANCY
     Route: 015
  11. MAGNESIUM [Concomitant]
     Indication: DRUG EXPOSURE DURING PREGNANCY
     Route: 015

REACTIONS (8)
  - ATRIOVENTRICULAR SEPTAL DEFECT [None]
  - HEART DISEASE CONGENITAL [None]
  - KIDNEY MALFORMATION [None]
  - LIMB MALFORMATION [None]
  - OESOPHAGEAL ATRESIA [None]
  - SPINE MALFORMATION [None]
  - TRACHEAL STENOSIS [None]
  - TRACHEO-OESOPHAGEAL FISTULA [None]
